FAERS Safety Report 6306323-3 (Version None)
Quarter: 2009Q3

REPORT INFORMATION
  Report Type: 
  Country: None (occurrence: None)
  Receive Date: 20090812
  Receipt Date: 20070921
  Transmission Date: 20100115
  Serious: Yes (Other)
  Sender: FDA-Public Use
  Company Number: US-ASTRAZENECA-2006UW24195

PATIENT
  Age: 17300 Day
  Sex: Male
  Weight: 83.7 kg

DRUGS (14)
  1. SEROQUEL [Suspect]
     Indication: SCHIZOPHRENIA
     Route: 048
     Dates: start: 20020625
  2. SEROQUEL [Suspect]
     Indication: DEPRESSION
     Route: 048
     Dates: start: 20020625
  3. SEROQUEL [Suspect]
     Route: 048
     Dates: start: 20040123
  4. SEROQUEL [Suspect]
     Route: 048
     Dates: start: 20040123
  5. HALDOL [Concomitant]
     Dates: start: 20060607
  6. ZYPREXA [Concomitant]
     Dates: start: 20050120
  7. ZYPREXA [Concomitant]
     Dates: start: 20020916, end: 20050510
  8. CLOMIPRAMINE HCL [Concomitant]
     Dates: start: 20020625
  9. ALPRAZOLAM [Concomitant]
     Dates: start: 20021106
  10. LYRICA [Concomitant]
     Indication: AUTONOMIC NEUROPATHY
     Route: 048
     Dates: start: 20070529
  11. LISINOPRIL [Concomitant]
     Route: 048
     Dates: start: 20040426
  12. LOVASTATIN [Concomitant]
     Dates: start: 20040625
  13. HALOPERIDOL [Concomitant]
     Dates: start: 20050425
  14. ZOCOR [Concomitant]
     Route: 048
     Dates: start: 20050510

REACTIONS (4)
  - DIABETES MELLITUS [None]
  - DIABETES MELLITUS INADEQUATE CONTROL [None]
  - DIABETIC NEPHROPATHY [None]
  - DIABETIC NEUROPATHY [None]
